FAERS Safety Report 5253741-0 (Version None)
Quarter: 2007Q1

REPORT INFORMATION
  Report Type: 
  Country: None (occurrence: None)
  Receive Date: 20061201
  Receipt Date: 20060803
  Transmission Date: 20070707
  Serious: No
  Sender: FDA-Public Use
  Company Number: 2006PV018788

PATIENT
  Age: 67 Year
  Sex: Female
  Weight: 55.7924 kg

DRUGS (5)
  1. BYETTA [Suspect]
     Indication: DIABETES MELLITUS NON-INSULIN-DEPENDENT
     Dosage: 10 MCG;BID;SC : 5 MCG;BID;SC
     Route: 058
     Dates: start: 20060703, end: 20060802
  2. BYETTA [Suspect]
     Indication: DIABETES MELLITUS NON-INSULIN-DEPENDENT
     Dosage: 10 MCG;BID;SC : 5 MCG;BID;SC
     Route: 058
     Dates: start: 20060803
  3. NOVOLOG [Concomitant]
  4. GLUCOPHAGE - SLOW RELEASE [Concomitant]
  5. AMARYL [Concomitant]

REACTIONS (5)
  - BLOOD GLUCOSE DECREASED [None]
  - BLOOD GLUCOSE INCREASED [None]
  - DECREASED APPETITE [None]
  - MEDICATION ERROR [None]
  - WEIGHT DECREASED [None]
